FAERS Safety Report 9798848 (Version 3)
Quarter: 2015Q3

REPORT INFORMATION
  Report Type: Spontaneous
  Country: US (occurrence: US)
  Receive Date: 20140106
  Receipt Date: 20150806
  Transmission Date: 20151125
  Serious: No
  Sender: FDA-Public Use
  Company Number: US-GILEAD-2010-0033393

PATIENT
  Age: 52 Year
  Sex: Female

DRUGS (3)
  1. REVATIO [Concomitant]
     Active Substance: SILDENAFIL CITRATE
  2. LETAIRIS [Suspect]
     Active Substance: AMBRISENTAN
     Indication: PULMONARY ARTERIAL HYPERTENSION
     Route: 048
     Dates: start: 20090716
  3. VENTAVIS [Concomitant]
     Active Substance: ILOPROST

REACTIONS (2)
  - Blood urine present [Unknown]
  - Liver disorder [Unknown]

NARRATIVE: CASE EVENT DATE: 20101108
